FAERS Safety Report 7772795-0 (Version None)
Quarter: 2011Q3

REPORT INFORMATION
  Report Type: 
  Country: None (occurrence: None)
  Receive Date: 20110922
  Receipt Date: 20100106
  Transmission Date: 20111222
  Serious: No
  Sender: FDA-Public Use
  Company Number: US-ASTRAZENECA-2007UW01901

PATIENT
  Age: 396 Month
  Sex: Female
  Weight: 117 kg

DRUGS (27)
  1. SEROQUEL [Suspect]
     Route: 048
     Dates: start: 20060720, end: 20070116
  2. SEROQUEL [Suspect]
     Route: 048
     Dates: start: 20070118, end: 20070201
  3. SEROQUEL [Suspect]
     Route: 048
     Dates: start: 20070118, end: 20070201
  4. HALDOL [Concomitant]
     Route: 048
     Dates: start: 20021005, end: 20021217
  5. SEROQUEL [Suspect]
     Route: 048
     Dates: start: 20060720, end: 20070116
  6. SEROQUEL [Suspect]
     Route: 048
     Dates: start: 20051108
  7. SEROQUEL [Suspect]
     Indication: DEPRESSION
     Route: 048
     Dates: start: 19990101, end: 20030123
  8. SEROQUEL [Suspect]
     Route: 048
     Dates: start: 20051108
  9. SEROQUEL [Suspect]
     Route: 048
     Dates: start: 20060720, end: 20070116
  10. GEODON [Concomitant]
     Indication: BIPOLAR DISORDER
     Route: 048
     Dates: start: 19990101
  11. LEXAPRO [Concomitant]
     Indication: DEPRESSION
     Route: 048
     Dates: start: 19990101
  12. SEROQUEL [Suspect]
     Route: 048
     Dates: start: 20051225, end: 20070109
  13. SEROQUEL [Suspect]
     Route: 048
     Dates: start: 20051225, end: 20070109
  14. RISPERDAL [Concomitant]
     Indication: BIPOLAR DISORDER
     Route: 048
     Dates: start: 19990101
  15. SEROQUEL [Suspect]
     Route: 048
     Dates: start: 20051225, end: 20070109
  16. SEROQUEL [Suspect]
     Dosage: 200 MG TO 400 MG
     Route: 048
     Dates: start: 20080601
  17. SEROQUEL [Suspect]
     Dosage: 200 MG TO 400 MG
     Route: 048
     Dates: start: 20080601
  18. SEROQUEL [Suspect]
     Dosage: 200 MG TO 400 MG
     Route: 048
     Dates: start: 20080601
  19. SYMBYAX [Concomitant]
     Dosage: 6 MG - 25 MG
     Route: 048
     Dates: start: 20040310
  20. SEROQUEL [Suspect]
     Route: 048
     Dates: start: 20051108
  21. SEROQUEL [Suspect]
     Route: 048
     Dates: start: 20070118, end: 20070201
  22. HALDOL [Concomitant]
     Indication: SCHIZOPHRENIA
     Dates: start: 19990101
  23. RISPERDAL [Concomitant]
     Dosage: 1 MG - 2 MG
     Route: 048
     Dates: start: 20010813
  24. ZOLOFT [Concomitant]
     Indication: DEPRESSION
     Route: 048
     Dates: start: 19990101
  25. SEROQUEL [Suspect]
     Indication: BIPOLAR DISORDER
     Route: 048
     Dates: start: 19990101, end: 20030123
  26. SEROQUEL [Suspect]
     Indication: SCHIZOPHRENIA
     Route: 048
     Dates: start: 19990101, end: 20030123
  27. GEODON [Concomitant]
     Dosage: 20 MG - 80 MG
     Dates: start: 20020610, end: 20060901

REACTIONS (3)
  - FALL [None]
  - TYPE 2 DIABETES MELLITUS [None]
  - GESTATIONAL DIABETES [None]
